FAERS Safety Report 8759398 (Version 1)
Quarter: 2012Q4

REPORT INFORMATION
  Report Type: 
  Country: US (occurrence: US)
  Receive Date: 20120829
  Receipt Date: 20120829
  Transmission Date: 20130627
  Serious: No
  Sender: FDA-Public Use
  Company Number: US-B.I. PHARMACEUTICALS,INC./RIDGEFIELD-2012-BP-20693BP

PATIENT
  Age: 59 Year
  Sex: Male
  Weight: 82 kg

DRUGS (5)
  1. SPIRIVA [Suspect]
     Indication: CHRONIC OBSTRUCTIVE PULMONARY DISEASE
     Dosage: 18 mcg
     Route: 055
     Dates: start: 201001
  2. SPIRIVA [Suspect]
     Route: 048
     Dates: start: 20120823, end: 20120823
  3. NAPROXEN [Concomitant]
     Indication: ARTHRALGIA
     Route: 048
     Dates: start: 2008
  4. PAXIL [Concomitant]
     Indication: DEPRESSION
     Dosage: 40 mg
     Route: 048
     Dates: start: 2011
  5. TEMAZEPAM [Concomitant]
     Indication: INSOMNIA
     Route: 048
     Dates: start: 2008

REACTIONS (2)
  - Incorrect route of drug administration [Recovered/Resolved]
  - Depression [Not Recovered/Not Resolved]
